FAERS Safety Report 17970314 (Version 2)
Quarter: 2020Q3

REPORT INFORMATION
  Report Type: Report from Study
  Country: None (occurrence: AE)
  Receive Date: 20200702
  Receipt Date: 20200714
  Transmission Date: 20201103
  Serious: No
  Sender: FDA-Public Use
  Company Number: AE-ABBVIE-20K-166-3356144-00

PATIENT
  Age: 79 Year
  Sex: Male
  Weight: 89 kg

DRUGS (6)
  1. SYNDOPA CR [Concomitant]
     Route: 048
     Dates: start: 20200424
  2. DUODOPA [Suspect]
     Active Substance: CARBIDOPA\LEVODOPA
     Dosage: THE CONTINUOUS DOSE
     Route: 050
     Dates: start: 2020, end: 2020
  3. DUODOPA [Suspect]
     Active Substance: CARBIDOPA\LEVODOPA
     Indication: PARKINSON^S DISEASE
     Dosage: AM DOSE?20ML?CONT.DOSE?5 ML?EXTRA DOSE?1 ML
     Route: 050
     Dates: start: 20200312, end: 2020
  4. MADOPAR [Concomitant]
     Active Substance: BENSERAZIDE HYDROCHLORIDE\LEVODOPA
     Indication: PARKINSON^S DISEASE
     Route: 048
     Dates: start: 20200315
  5. DUODOPA [Suspect]
     Active Substance: CARBIDOPA\LEVODOPA
     Dosage: PRO RE NATA
     Route: 050
     Dates: start: 2020
  6. SYNDOPA CR [Concomitant]
     Indication: PARKINSON^S DISEASE
     Route: 048
     Dates: start: 20200315, end: 2020

REACTIONS (2)
  - Stoma site infection [Unknown]
  - Stoma site discharge [Recovered/Resolved]

NARRATIVE: CASE EVENT DATE: 2020
